FAERS Safety Report 25729127 (Version 2)
Quarter: 2025Q4

REPORT INFORMATION
  Report Type: Report from Study
  Country: BR (occurrence: BR)
  Receive Date: 20250827
  Receipt Date: 20251006
  Transmission Date: 20260118
  Serious: Yes (Hospitalization)
  Sender: BIOGEN
  Company Number: BR-BIOGEN-2025BI01321740

PATIENT
  Age: 25 Year
  Sex: Female
  Weight: 55 kg

DRUGS (7)
  1. TYSABRI [Suspect]
     Active Substance: NATALIZUMAB
     Indication: Multiple sclerosis
     Route: 050
     Dates: start: 202411
  2. CARBAMAZEPINE [Concomitant]
     Active Substance: CARBAMAZEPINE
     Indication: Seizure
     Dosage: 600 MG DIVIDED INTO THREE TIMES A DAY
     Route: 050
     Dates: start: 202401
  3. AMANTADINE [Concomitant]
     Active Substance: AMANTADINE
     Indication: Tremor
     Route: 050
  4. CLONAZEPAM [Concomitant]
     Active Substance: CLONAZEPAM
     Indication: Insomnia
     Route: 050
  5. DESVENLAFAXINE [Concomitant]
     Active Substance: DESVENLAFAXINE
     Indication: Depression
     Route: 050
     Dates: start: 202401
  6. TRAZODONE [Concomitant]
     Active Substance: TRAZODONE HYDROCHLORIDE
     Indication: Depression
     Route: 050
  7. PREGABALIN [Concomitant]
     Active Substance: PREGABALIN
     Indication: Musculoskeletal disorder
     Route: 050
     Dates: start: 202401

REACTIONS (12)
  - Benign hepatic neoplasm [Unknown]
  - Hepatic steatosis [Unknown]
  - Anaemia [Unknown]
  - Hepatic iron overload [Unknown]
  - Splenic iron overload [Unknown]
  - Pain [Unknown]
  - Abdominal pain [Unknown]
  - Asthenia [Unknown]
  - Gait disturbance [Unknown]
  - Vomiting [Unknown]
  - Nausea [Unknown]
  - Dizziness [Unknown]

NARRATIVE: CASE EVENT DATE: 20250601
